FAERS Safety Report 7702714-4 (Version None)
Quarter: 2011Q3

REPORT INFORMATION
  Report Type: 
  Country: None (occurrence: None)
  Receive Date: 20110823
  Receipt Date: 20110809
  Transmission Date: 20111222
  Serious: Yes (Death, Hospitalization)
  Sender: FDA-Public Use
  Company Number: TW-CELGENEUS-153-CCAZA-11052708

PATIENT
  Sex: Female
  Weight: 43.8 kg

DRUGS (11)
  1. KEPPRA [Concomitant]
     Dosage: 1000 MILLIGRAM
     Route: 048
     Dates: start: 20110714
  2. CLONAZEPAM [Concomitant]
     Route: 048
     Dates: start: 20110309
  3. SILYMARIN [Concomitant]
     Dosage: 2 TABLETS OF 35 MG
     Route: 048
     Dates: start: 20110714, end: 20110714
  4. SILYMARIN [Concomitant]
     Indication: HEPATITIS
     Dosage: 105 MILLIGRAM
     Route: 048
     Dates: start: 20110516, end: 20110523
  5. KEPPRA [Concomitant]
     Dosage: 1000 MILLIGRAM
     Route: 048
     Dates: start: 20110309
  6. SILYMARIN [Concomitant]
     Dosage: 2 TABLETS OF 35 MG
     Route: 048
     Dates: start: 20110611, end: 20110614
  7. RHIN [Concomitant]
     Dosage: NA
     Route: 048
     Dates: start: 20110516, end: 20110523
  8. VIDAZA [Suspect]
     Dosage: 100 MILLIGRAM
     Route: 041
     Dates: start: 20110621, end: 20110628
  9. LAMICTAL [Concomitant]
     Dosage: 200 MILLIGRAM
     Route: 048
     Dates: start: 20110309
  10. SILYMARIN [Concomitant]
     Dosage: 2 TABLETS OF 35 MG
     Route: 048
     Dates: start: 20110730, end: 20110802
  11. VIDAZA [Suspect]
     Dosage: 100 MILLIGRAM
     Route: 058
     Dates: start: 20110509, end: 20110516

REACTIONS (3)
  - SEPTIC SHOCK [None]
  - VOMITING [None]
  - FEBRILE NEUTROPENIA [None]
